FAERS Safety Report 21712145 (Version 2)
Quarter: 2025Q4

REPORT INFORMATION
  Report Type: Spontaneous
  Country: US (occurrence: US)
  Receive Date: 20221212
  Receipt Date: 20251210
  Transmission Date: 20260117
  Serious: Yes (Death, Life-Threatening, Hospitalization, Other)
  Sender: AMGEN
  Company Number: US-AMGEN-USASP2022209733

PATIENT
  Age: 64 Year
  Sex: Male

DRUGS (4)
  1. RITUXIMAB [Suspect]
     Active Substance: RITUXIMAB
     Indication: Anti-IgLON5 disease
     Dosage: 1 GRAM, Q2WK (FOR 2 DOSES, 14 DAYS APART)
     Route: 065
  2. PREDNISONE [Suspect]
     Active Substance: PREDNISONE
     Indication: Anti-IgLON5 disease
     Dosage: UNK
     Route: 065
  3. PREDNISONE [Suspect]
     Active Substance: PREDNISONE
     Dosage: TAPER
     Route: 065
  4. METHYLPREDNISOLONE [Concomitant]
     Active Substance: METHYLPREDNISOLONE
     Dosage: 1000 MILLIGRAM, QD FOR 5 DAYS
     Route: 040

REACTIONS (7)
  - Pneumonia aspiration [Fatal]
  - Paresis cranial nerve [Unknown]
  - Sleep apnoea syndrome [Unknown]
  - Pseudomonas test positive [Unknown]
  - Hyponatraemia [Unknown]
  - Drug effective for unapproved indication [Unknown]
  - Off label use [Unknown]
